FAERS Safety Report 12744983 (Version 1)
Quarter: 2016Q3

REPORT INFORMATION
  Report Type: Other
  Country: FR (occurrence: FR)
  Receive Date: 20160915
  Receipt Date: 20160915
  Transmission Date: 20161109
  Serious: Yes (Other)
  Sender: FDA-Public Use
  Company Number: FR-LUPIN PHARMACEUTICALS INC.-2016-04143

PATIENT
  Age: 70 Year
  Sex: Male

DRUGS (2)
  1. RIFAMPICIN [Suspect]
     Active Substance: RIFAMPIN
     Indication: DEVICE RELATED INFECTION
     Route: 065
  2. AMOXICILLIN. [Concomitant]
     Active Substance: AMOXICILLIN
     Indication: DEVICE RELATED INFECTION
     Route: 065

REACTIONS (1)
  - Systemic lupus erythematosus [Recovered/Resolved]
